FAERS Safety Report 13630533 (Version 1)
Quarter: 2017Q2

REPORT INFORMATION
  Report Type: Spontaneous
  Country: US (occurrence: US)
  Receive Date: 20170531
  Receipt Date: 20170531
  Transmission Date: 20170830
  Serious: No
  Sender: FDA-Public Use
  Company Number: US-ASTELLAS-1309588

PATIENT
  Sex: Male

DRUGS (21)
  1. FLOVENT HFA [Concomitant]
     Active Substance: FLUTICASONE PROPIONATE
  2. LOFIBRA (UNITED STATES) [Concomitant]
  3. PRAVASTATIN SODIUM. [Concomitant]
     Active Substance: PRAVASTATIN SODIUM
  4. BISOPROLOL FUMARATE. [Concomitant]
     Active Substance: BISOPROLOL FUMARATE
  5. COMBIVENT [Concomitant]
     Active Substance: ALBUTEROL SULFATE\IPRATROPIUM BROMIDE
  6. DOCUSATE SODIUM. [Concomitant]
     Active Substance: DOCUSATE SODIUM
  7. FISH OIL [Concomitant]
     Active Substance: FISH OIL
  8. FOLIC ACID. [Concomitant]
     Active Substance: FOLIC ACID
  9. ZEBETA [Concomitant]
     Active Substance: BISOPROLOL FUMARATE
  10. ZYFLO [Concomitant]
     Active Substance: ZILEUTON
  11. TARCEVA [Suspect]
     Active Substance: ERLOTINIB HYDROCHLORIDE
     Indication: LUNG NEOPLASM MALIGNANT
     Route: 048
     Dates: start: 20120606
  12. LOSARTAN POTASSIUM. [Concomitant]
     Active Substance: LOSARTAN POTASSIUM
  13. COENZYME Q10 [Concomitant]
     Active Substance: UBIDECARENONE
  14. ZIRGAN [Concomitant]
     Active Substance: GANCICLOVIR
  15. ALFUZOSIN HCL [Concomitant]
     Active Substance: ALFUZOSIN HYDROCHLORIDE
  16. CARAFATE [Concomitant]
     Active Substance: SUCRALFATE
  17. LORAZEPAM. [Concomitant]
     Active Substance: LORAZEPAM
  18. CRESTOR [Concomitant]
     Active Substance: ROSUVASTATIN CALCIUM
  19. CALCIUM D 500 [Concomitant]
     Active Substance: CALCIUM\VITAMIN D
  20. CILOSTAZOL. [Concomitant]
     Active Substance: CILOSTAZOL
  21. TRICOR [Concomitant]
     Active Substance: FENOFIBRATE

REACTIONS (2)
  - Vomiting [Unknown]
  - Nausea [Unknown]
